FAERS Safety Report 5910380-3 (Version None)
Quarter: 2008Q4

REPORT INFORMATION
  Report Type: 
  Country: None (occurrence: None)
  Receive Date: 20081007
  Receipt Date: 20080110
  Transmission Date: 20090506
  Serious: No
  Sender: FDA-Public Use
  Company Number: US-ASTRAZENECA-2008UW00687

PATIENT
  Age: 81 Year
  Sex: Female
  Weight: 56.7 kg

DRUGS (9)
  1. ARIMIDEX [Suspect]
     Indication: BREAST CANCER FEMALE
     Route: 048
     Dates: start: 20071211
  2. SPIRONOLACTONE [Concomitant]
  3. FUROSEMIDE [Concomitant]
  4. POTASSIUM CHLORIDE [Concomitant]
  5. CORDARONE [Concomitant]
  6. DIGOXIN [Concomitant]
  7. COUMADIN [Concomitant]
  8. ALTACE [Concomitant]
  9. COREG [Concomitant]

REACTIONS (5)
  - DYSGEUSIA [None]
  - HEADACHE [None]
  - INSOMNIA [None]
  - PAIN [None]
  - PARAESTHESIA [None]
